FAERS Safety Report 24691049 (Version 2)
Quarter: 2025Q3

REPORT INFORMATION
  Report Type: Spontaneous
  Country: EU (occurrence: EU)
  Receive Date: 20241203
  Receipt Date: 20250803
  Transmission Date: 20251020
  Serious: Yes (Life-Threatening, Hospitalization, Other)
  Sender: ALEXION PHARMACEUTICALS
  Company Number: EU-ASTRAZENECA-202411GLO026475IT

PATIENT
  Age: 25 Year
  Sex: Female

DRUGS (2)
  1. QUETIAPINE FUMARATE [Suspect]
     Active Substance: QUETIAPINE FUMARATE
     Indication: Schizophrenia
     Dates: start: 20241031, end: 20241031
  2. DELORAZEPAM [Suspect]
     Active Substance: DELORAZEPAM
     Indication: Anxiety disorder
     Dates: start: 20241031, end: 20241031

REACTIONS (4)
  - Drug abuse [Recovering/Resolving]
  - Toxicity to various agents [Recovering/Resolving]
  - Persistent depressive disorder [Recovering/Resolving]
  - Somnolence [Recovering/Resolving]

NARRATIVE: CASE EVENT DATE: 20241031
